FAERS Safety Report 5258876-4 (Version None)
Quarter: 2007Q1

REPORT INFORMATION
  Report Type: 
  Country: None (occurrence: None)
  Receive Date: 20070306
  Receipt Date: 20070306
  Transmission Date: 20070707
  Serious: Yes (Life-Threatening, Hospitalization, Disabling, Other)
  Sender: FDA-Public Use
  Company Number: None

PATIENT
  Sex: Male
  Weight: 81.1939 kg

DRUGS (2)
  1. PACLITAXEL [Suspect]
     Indication: ARTERIOSCLEROSIS
     Dosage: (8) STENTS
     Dates: start: 20051130
  2. CYPHER/SIROLIMUS-ELUTING CORONARY STENT [Suspect]
     Indication: ARTERIOSCLEROSIS
     Dosage: (6) STENTS
     Dates: start: 20060301

REACTIONS (4)
  - ARTERIAL OCCLUSIVE DISEASE [None]
  - CORONARY ARTERY OCCLUSION [None]
  - FEMORAL ARTERY OCCLUSION [None]
  - MYOCARDIAL INFARCTION [None]
